FAERS Safety Report 16231706 (Version 1)
Quarter: 2019Q2

REPORT INFORMATION
  Report Type: Spontaneous
  Country: US (occurrence: US)
  Receive Date: 20190424
  Receipt Date: 20190424
  Transmission Date: 20190711
  Serious: No
  Sender: FDA-Public Use
  Company Number: US-HIKMA PHARMACEUTICALS USA INC.-US-H14001-19-02125

PATIENT
  Sex: Female

DRUGS (1)
  1. DIAZEPAM. [Suspect]
     Active Substance: DIAZEPAM
     Indication: DRUG WITHDRAWAL SYNDROME
     Dosage: 5 MG/5 ML; TAPER AS DIRECTED
     Route: 048

REACTIONS (6)
  - Migraine [Unknown]
  - Feeling abnormal [Unknown]
  - Anxiety [Unknown]
  - Nausea [Unknown]
  - Tremor [Unknown]
  - Withdrawal syndrome [Unknown]
